FAERS Safety Report 8418530-4 (Version None)
Quarter: 2012Q2

REPORT INFORMATION
  Report Type: 
  Country: None (occurrence: None)
  Receive Date: 20120530
  Receipt Date: 20120521
  Transmission Date: 20120825
  Serious: Yes (Hospitalization, Other)
  Sender: FDA-Public Use
  Company Number: 2011SP046467

PATIENT
  Age: 48 Year
  Sex: Female

DRUGS (3)
  1. NUVARING [Suspect]
     Indication: CONTRACEPTION
     Dates: start: 20071001, end: 20080901
  2. NUVARING [Suspect]
     Indication: CONTRACEPTION
     Dates: end: 20081023
  3. LIPITOR [Concomitant]

REACTIONS (44)
  - PULMONARY EMBOLISM [None]
  - THROMBOPHLEBITIS SUPERFICIAL [None]
  - GLIOSIS [None]
  - INFARCTION [None]
  - PAIN IN EXTREMITY [None]
  - CHILLS [None]
  - SUPERIOR SAGITTAL SINUS THROMBOSIS [None]
  - HEADACHE [None]
  - LUNG NEOPLASM [None]
  - INJECTION SITE HAEMATOMA [None]
  - HAEMATOMA [None]
  - COAGULOPATHY [None]
  - CAVERNOUS SINUS THROMBOSIS [None]
  - MATERNAL EXPOSURE BEFORE PREGNANCY [None]
  - DEEP VEIN THROMBOSIS [None]
  - MENTAL DISORDER [None]
  - HYPERCOAGULATION [None]
  - VARICOSE VEIN [None]
  - MAY-THURNER SYNDROME [None]
  - COGNITIVE DISORDER [None]
  - INJURY [None]
  - IMPAIRED WORK ABILITY [None]
  - DRUG EFFECT DECREASED [None]
  - DRUG INTOLERANCE [None]
  - QUALITY OF LIFE DECREASED [None]
  - DRUG RESISTANCE [None]
  - CHOLELITHIASIS [None]
  - ASTHENIA [None]
  - COMPLICATION OF DEVICE REMOVAL [None]
  - ROTATOR CUFF SYNDROME [None]
  - MIGRAINE [None]
  - CENTRAL NERVOUS SYSTEM LESION [None]
  - CEREBROVASCULAR DISORDER [None]
  - HYPERLIPIDAEMIA [None]
  - FIBROMYALGIA [None]
  - HYPERCHOLESTEROLAEMIA [None]
  - BALANCE DISORDER [None]
  - OVARIAN CYST [None]
  - COLLATERAL CIRCULATION [None]
  - VERTEBRAL ARTERY HYPOPLASIA [None]
  - OEDEMA PERIPHERAL [None]
  - FALL [None]
  - PREGNANCY [None]
  - ABORTION SPONTANEOUS [None]
